FAERS Safety Report 8115173-7 (Version None)
Quarter: 2012Q1

REPORT INFORMATION
  Report Type: 
  Country: None (occurrence: None)
  Receive Date: 20120206
  Receipt Date: 20120127
  Transmission Date: 20120608
  Serious: Yes (Other)
  Sender: FDA-Public Use
  Company Number: US-GENZYME-FABR-1002349

PATIENT

DRUGS (2)
  1. FABRAZYME [Suspect]
     Dosage: 80 MG, Q3W
     Route: 042
  2. FABRAZYME [Suspect]
     Indication: FABRY'S DISEASE
     Dosage: 80 MG, QOW
     Route: 042
     Dates: start: 20080101

REACTIONS (1)
  - CATARACT [None]
